FAERS Safety Report 10289568 (Version 1)
Quarter: 2014Q3

REPORT INFORMATION
  Report Type: Spontaneous
  Country: US (occurrence: None)
  Receive Date: 20140707
  Receipt Date: 20140707
  Transmission Date: 20150326
  Serious: Yes (Disabling)
  Sender: FDA-Public Use
  Company Number: None

PATIENT
  Age: 34 Year
  Sex: Female

DRUGS (2)
  1. MACROBID [Suspect]
     Active Substance: NITROFURANTOIN\NITROFURANTOIN MONOHYDRATE
     Indication: URINARY TRACT INFECTION
  2. CIPRO [Suspect]
     Active Substance: CIPROFLOXACIN HYDROCHLORIDE
     Indication: URINARY TRACT INFECTION
     Route: 048

REACTIONS (13)
  - Neuropathy peripheral [None]
  - Arthralgia [None]
  - Myalgia [None]
  - Hypoaesthesia [None]
  - Neuralgia [None]
  - Tension headache [None]
  - Peripheral swelling [None]
  - Pain in extremity [None]
  - Neck pain [None]
  - Sensory disturbance [None]
  - Asthenia [None]
  - Muscle spasms [None]
  - Musculoskeletal stiffness [None]

NARRATIVE: CASE EVENT DATE: 20130927
